FAERS Safety Report 5491694-0 (Version None)
Quarter: 2007Q4

REPORT INFORMATION
  Report Type: 
  Country: None (occurrence: None)
  Receive Date: 20071022
  Receipt Date: 20071016
  Transmission Date: 20080405
  Serious: Yes (Hospitalization, Other)
  Sender: FDA-Public Use
  Company Number: US-BAYER-200713360BCC

PATIENT
  Age: 66 Year
  Sex: Female
  Weight: 54 kg

DRUGS (3)
  1. PHILLIPS MILK OF MAGNESIA ORIGINAL [Suspect]
     Indication: CONSTIPATION
     Dosage: TOTAL DAILY DOSE: 15 ML  UNIT DOSE: 15 ML
     Route: 048
     Dates: start: 20070922
  2. NEXIUM [Concomitant]
  3. ATARAX [Concomitant]

REACTIONS (1)
  - ABDOMINAL DISTENSION [None]
